FAERS Safety Report 10154991 (Version 1)
Quarter: 2014Q2

REPORT INFORMATION
  Report Type: Spontaneous
  Country: US (occurrence: US)
  Receive Date: 20140506
  Receipt Date: 20140506
  Transmission Date: 20141212
  Serious: No
  Sender: FDA-Public Use
  Company Number: US-BAYER-2014-064635

PATIENT
  Age: 85 Year
  Sex: Female
  Weight: 71.66 kg

DRUGS (12)
  1. ALEVE TABLET [Suspect]
     Indication: ARTHRITIS
     Dosage: 1 DF, BID
     Route: 048
  2. ALEVE TABLET [Suspect]
     Indication: ARTHRITIS
     Dosage: 1 DF, BID
     Route: 048
     Dates: start: 201402
  3. BAYER ASPIRIN REGIMEN ADULT LOW STRENGTH [Suspect]
     Dosage: 1 DF, QD
     Route: 048
  4. VITAMIN B12 [Concomitant]
  5. BIOTIN [Concomitant]
  6. OMEPRAZOLE [Concomitant]
  7. RAMIPRIL [Concomitant]
  8. ISOSORBIDE [Concomitant]
  9. SPIRONOLACTONE [Concomitant]
  10. GLUCOSAMINE W/CHONDROITIN SULFATE [Concomitant]
  11. DOXYCYCLINE [Concomitant]
  12. ATENOLOL [Concomitant]

REACTIONS (2)
  - Incorrect drug administration duration [None]
  - Off label use [None]
